FAERS Safety Report 19935654 (Version 3)
Quarter: 2021Q4

REPORT INFORMATION
  Report Type: Spontaneous
  Country: US (occurrence: US)
  Receive Date: 20211008
  Receipt Date: 20211022
  Transmission Date: 20220303
  Serious: No
  Sender: FDA-Public Use
  Company Number: US-SANOFI-00801020

PATIENT
  Age: 64 Year
  Sex: Female

DRUGS (1)
  1. LANTUS SOLOSTAR [Suspect]
     Active Substance: INSULIN GLARGINE
     Indication: Type 2 diabetes mellitus
     Dosage: 25-30 UNITS SLIDING SCALE
     Route: 065
     Dates: start: 2020

REACTIONS (3)
  - Injection site pain [Unknown]
  - Injury associated with device [Unknown]
  - Device issue [Unknown]
